FAERS Safety Report 4318271-9 (Version None)
Quarter: 2004Q1

REPORT INFORMATION
  Report Type: 
  Country: None (occurrence: None)
  Receive Date: 20040315
  Receipt Date: 20040212
  Transmission Date: 20041129
  Serious: No
  Sender: FDA-Public Use
  Company Number: 2003176918US

PATIENT
  Age: 63 Year
  Sex: Female

DRUGS (5)
  1. BEXTRA [Suspect]
     Indication: OSTEOARTHRITIS
     Dosage: 20 MG, BID,
     Dates: start: 20030101, end: 20040101
  2. GLUCOPHAGE [Concomitant]
  3. GLYBURIDE [Concomitant]
  4. VARAPAMIL [Concomitant]
  5. TRILEPTAL [Concomitant]

REACTIONS (3)
  - ABDOMINAL PAIN UPPER [None]
  - HALLUCINATION [None]
  - NAUSEA [None]
